FAERS Safety Report 6224483-X (Version None)
Quarter: 2009Q2

REPORT INFORMATION
  Report Type: 
  Country: None (occurrence: None)
  Receive Date: 20090612
  Receipt Date: 20090317
  Transmission Date: 20091009
  Serious: No
  Sender: FDA-Public Use
  Company Number: US-ABBOTT-09P-163-0563761-00

PATIENT
  Sex: Female
  Weight: 59.02 kg

DRUGS (3)
  1. HUMIRA [Suspect]
     Indication: PSORIATIC ARTHROPATHY
     Dates: end: 20080101
  2. HUMIRA [Suspect]
  3. HUMIRA [Suspect]
     Dosage: 40 MG PRE-FILLED SYRINGE EVERY OTHER WEEK
     Dates: end: 20080101

REACTIONS (2)
  - INJECTION SITE IRRITATION [None]
  - STAPHYLOCOCCAL INFECTION [None]
